FAERS Safety Report 5512700-0 (Version None)
Quarter: 2007Q4

REPORT INFORMATION
  Report Type: 
  Country: None (occurrence: None)
  Receive Date: 20071108
  Receipt Date: 20071101
  Transmission Date: 20080405
  Serious: Yes (Other)
  Sender: FDA-Public Use
  Company Number: OSCN-PR-0705S-0223

PATIENT
  Age: 66 Year
  Sex: Male

DRUGS (1)
  1. OMNISCAN [Suspect]
     Indication: DRUG USE FOR UNKNOWN INDICATION
     Dosage: 20 ML, SINGLE DOSE, I.V.
     Route: 042

REACTIONS (1)
  - NEPHROGENIC SYSTEMIC FIBROSIS [None]
